FAERS Safety Report 15464679 (Version 1)
Quarter: 2018Q4

REPORT INFORMATION
  Report Type: Report from Study
  Country: ES (occurrence: ES)
  Receive Date: 20181004
  Receipt Date: 20181004
  Transmission Date: 20190204
  Serious: Yes (Death, Hospitalization)
  Sender: FDA-Public Use
  Company Number: ES-MYLANLABS-2018M1073078

PATIENT
  Age: 64 Year
  Sex: Male

DRUGS (2)
  1. FLUOXETINE [Suspect]
     Active Substance: FLUOXETINE HYDROCHLORIDE
     Indication: DEPRESSION
     Dosage: 20 MG, QD
     Route: 048
     Dates: start: 20161111, end: 20171021
  2. SINTROM [Interacting]
     Active Substance: ACENOCOUMAROL
     Indication: ANTITHROMBIN III DEFICIENCY
     Dosage: UNK UNK, QD
     Route: 048
     Dates: start: 2007, end: 20171021

REACTIONS (2)
  - Drug interaction [Unknown]
  - Subdural haematoma [Fatal]

NARRATIVE: CASE EVENT DATE: 20171020
